FAERS Safety Report 16512910 (Version 2)
Quarter: 2019Q3

REPORT INFORMATION
  Report Type: Spontaneous
  Country: US (occurrence: US)
  Receive Date: 20190702
  Receipt Date: 20190710
  Transmission Date: 20191004
  Serious: Yes (Hospitalization)
  Sender: FDA-Public Use
  Company Number: US-PFIZER INC-2019281359

PATIENT
  Age: 71 Year
  Sex: Male
  Weight: 111.1 kg

DRUGS (1)
  1. DAPTOMYCIN. [Suspect]
     Active Substance: DAPTOMYCIN
     Indication: STAPHYLOCOCCAL INFECTION
     Dosage: 600 MG/50 ML NS, EVERY 24 HRS (CONTENTS OF ONE EASYPUMP (600 MG) INFUSED OVER 30 MINUTES (100ML/HR))
     Route: 042
     Dates: start: 20180223, end: 20180223

REACTIONS (3)
  - Chills [Recovered/Resolved]
  - Blood pressure fluctuation [Unknown]
  - Tremor [Recovered/Resolved]

NARRATIVE: CASE EVENT DATE: 20180223
